FAERS Safety Report 7788542-2 (Version None)
Quarter: 2011Q3

REPORT INFORMATION
  Report Type: 
  Country: None (occurrence: None)
  Receive Date: 20110928
  Receipt Date: 20110912
  Transmission Date: 20111222
  Serious: Yes (Death, Hospitalization)
  Sender: FDA-Public Use
  Company Number: US-ACCORD-010680

PATIENT
  Age: 51 Year
  Sex: Female

DRUGS (4)
  1. CLONAZEPAM [Suspect]
  2. ATIVAN [Suspect]
  3. CARISOPRODOL [Suspect]
  4. MELATONIN (MELATONIN) [Suspect]

REACTIONS (7)
  - UNRESPONSIVE TO STIMULI [None]
  - SOFT TISSUE HAEMORRHAGE [None]
  - PAIN [None]
  - TACHYPNOEA [None]
  - INTENTIONAL OVERDOSE [None]
  - PNEUMONIA ASPIRATION [None]
  - URINARY BLADDER RUPTURE [None]
